FAERS Safety Report 7252537-8 (Version None)
Quarter: 2011Q1

REPORT INFORMATION
  Report Type: 
  Country: None (occurrence: None)
  Receive Date: 20110129
  Receipt Date: 20100111
  Transmission Date: 20110831
  Serious: No
  Sender: FDA-Public Use
  Company Number: US-ABBOTT-10P-163-0617317-00

PATIENT
  Sex: Female
  Weight: 77.18 kg

DRUGS (8)
  1. NAPROXEN [Concomitant]
     Indication: BACK PAIN
  2. HUMIRA [Suspect]
  3. HUMIRA [Suspect]
     Indication: CROHN'S DISEASE
     Dates: start: 20091226, end: 20091226
  4. ENTOCORT EC [Concomitant]
  5. NAPROXEN [Concomitant]
     Indication: MUSCULOSKELETAL DISCOMFORT
  6. HUMIRA [Suspect]
     Dates: end: 20100107
  7. BIRTH CONTROL [Concomitant]
     Indication: CONTRACEPTION
     Dosage: PILL
  8. ASAPHEX [Concomitant]

REACTIONS (7)
  - INJECTION SITE PRURITUS [None]
  - HEADACHE [None]
  - INJECTION SITE URTICARIA [None]
  - RASH PRURITIC [None]
  - INJECTION SITE HAEMATOMA [None]
  - INJECTION SITE SWELLING [None]
  - NAUSEA [None]
